FAERS Safety Report 13733382 (Version 1)
Quarter: 2017Q3

REPORT INFORMATION
  Report Type: Spontaneous
  Country: US (occurrence: US)
  Receive Date: 20170707
  Receipt Date: 20170707
  Transmission Date: 20171127
  Serious: Yes (Other)
  Sender: FDA-Public Use
  Company Number: US-ROCHE-1246079

PATIENT
  Sex: Male

DRUGS (3)
  1. GANCICLOVIR. [Suspect]
     Active Substance: GANCICLOVIR
     Route: 042
  2. GANCICLOVIR. [Suspect]
     Active Substance: GANCICLOVIR
     Indication: CONGENITAL CYTOMEGALOVIRUS INFECTION
     Route: 042
  3. VALGANCICLOVIR. [Suspect]
     Active Substance: VALGANCICLOVIR
     Indication: CONGENITAL CYTOMEGALOVIRUS INFECTION
     Route: 048

REACTIONS (2)
  - Neutropenia [Recovered/Resolved]
  - Drug resistance [Recovering/Resolving]
